FAERS Safety Report 7289414-2 (Version None)
Quarter: 2011Q1

REPORT INFORMATION
  Report Type: 
  Country: None (occurrence: None)
  Receive Date: 20110211
  Receipt Date: 20110207
  Transmission Date: 20110831
  Serious: Yes (Other)
  Sender: FDA-Public Use
  Company Number: US-ABBOTT-11P-163-0703943-00

PATIENT
  Sex: Female
  Weight: 86.26 kg

DRUGS (11)
  1. NIASPAN [Suspect]
     Dates: start: 20100601, end: 20101001
  2. CINNAMON [Concomitant]
     Indication: PRODUCT USED FOR UNKNOWN INDICATION
  3. IBUPROFEN [Concomitant]
     Indication: RHEUMATOID ARTHRITIS
  4. METOPROLOL TARTRATE [Concomitant]
     Indication: HYPERTENSION
  5. FISH OIL [Concomitant]
     Indication: PRODUCT USED FOR UNKNOWN INDICATION
  6. ASCORBIC ACID [Concomitant]
     Indication: PRODUCT USED FOR UNKNOWN INDICATION
  7. VITAMIN D [Concomitant]
     Indication: PRODUCT USED FOR UNKNOWN INDICATION
  8. NIASPAN [Suspect]
     Dosage: TOOK ONLY ONE DOSE
     Dates: start: 20101001, end: 20101001
  9. NIASPAN [Suspect]
     Dates: start: 20101001
  10. IBUPROFEN [Concomitant]
     Indication: JOINT SWELLING
     Dosage: UP TO 6 TABLETS DAILY
  11. NIASPAN [Suspect]
     Indication: BLOOD CHOLESTEROL INCREASED
     Dates: start: 20100401, end: 20100601

REACTIONS (8)
  - MENISCUS LESION [None]
  - OEDEMA PERIPHERAL [None]
  - SYNOVIAL CYST [None]
  - LIVER FUNCTION TEST ABNORMAL [None]
  - FLUSHING [None]
  - JOINT EFFUSION [None]
  - FEELING ABNORMAL [None]
  - RED BLOOD CELL SEDIMENTATION RATE INCREASED [None]
